FAERS Safety Report 9807372 (Version 1)
Quarter: 2014Q1

REPORT INFORMATION
  Report Type: Spontaneous
  Country: US (occurrence: US)
  Receive Date: 20140110
  Receipt Date: 20140110
  Transmission Date: 20141002
  Serious: No
  Sender: FDA-Public Use
  Company Number: US-009507513-1401USA002308

PATIENT
  Sex: 0

DRUGS (2)
  1. PROVENTIL [Suspect]
     Indication: DYSPNOEA
     Dosage: 2 DF, EVERY 4 HOURS AS NEEDED.
     Route: 055
     Dates: start: 201304
  2. PROVENTIL [Suspect]
     Indication: WHEEZING

REACTIONS (2)
  - Drug dose omission [Unknown]
  - Product quality issue [Unknown]
